FAERS Safety Report 17685853 (Version 2)
Quarter: 2020Q3

REPORT INFORMATION
  Report Type: Spontaneous
  Country: BR (occurrence: BR)
  Receive Date: 20200420
  Receipt Date: 20200902
  Transmission Date: 20201102
  Serious: Yes (Death)
  Sender: FDA-Public Use
  Company Number: BR-BAYER-2020-066424

PATIENT
  Age: 61 Year
  Sex: Male

DRUGS (2)
  1. VITRAKVI [Suspect]
     Active Substance: LAROTRECTINIB
     Indication: LUNG ADENOCARCINOMA
  2. VITRAKVI [Suspect]
     Active Substance: LAROTRECTINIB
     Indication: METASTASES TO CENTRAL NERVOUS SYSTEM

REACTIONS (2)
  - Lung cancer metastatic [Fatal]
  - Respiratory tract infection [Fatal]
